FAERS Safety Report 12485085 (Version 1)
Quarter: 2016Q2

REPORT INFORMATION
  Report Type: Spontaneous
  Country: US (occurrence: US)
  Receive Date: 20160621
  Receipt Date: 20160621
  Transmission Date: 20160815
  Serious: No
  Sender: FDA-Public Use
  Company Number: US-PFIZER INC-2016299624

PATIENT
  Age: 51 Year
  Sex: Female
  Weight: 57 kg

DRUGS (2)
  1. SUMATRIPTAN SUCCINATE. [Suspect]
     Active Substance: SUMATRIPTAN SUCCINATE
     Indication: MIGRAINE
     Dosage: 50 MG, UNK
     Route: 048
     Dates: start: 2000
  2. FIORINAL [Concomitant]
     Active Substance: ASPIRIN\BUTALBITAL\CAFFEINE
     Indication: MIGRAINE
     Dosage: TWO CAPSULES AT THE ONSET OF A HEADACHE, THEN TWO CAPSULES AGAIN TWO HOURS LATER
     Route: 048
     Dates: start: 2008

REACTIONS (1)
  - Medication overuse headache [Unknown]

NARRATIVE: CASE EVENT DATE: 2005
